FAERS Safety Report 18151138 (Version 12)
Quarter: 2021Q1

REPORT INFORMATION
  Report Type: Spontaneous
  Country: US (occurrence: US)
  Receive Date: 20200814
  Receipt Date: 20210322
  Transmission Date: 20210419
  Serious: No
  Sender: FDA-Public Use
  Company Number: US-PFIZER INC-2020030539

PATIENT
  Age: 64 Year
  Sex: Female

DRUGS (3)
  1. LYRICA [Suspect]
     Active Substance: PREGABALIN
     Indication: PAIN
     Dosage: 200 MG, 3X/DAY
     Route: 048
  2. LYRICA [Suspect]
     Active Substance: PREGABALIN
     Indication: SCIATICA
     Dosage: 300 MG, 3X/DAY
     Route: 048
  3. LYRICA [Suspect]
     Active Substance: PREGABALIN
     Dosage: 200 MG

REACTIONS (9)
  - Affective disorder [Unknown]
  - Limb injury [Unknown]
  - Tooth loss [Unknown]
  - Product prescribing error [Unknown]
  - Anxiety [Unknown]
  - Drug ineffective [Unknown]
  - Prescribed overdose [Unknown]
  - Nervous system disorder [Unknown]
  - Product dose omission issue [Unknown]
